FAERS Safety Report 7046956-2 (Version None)
Quarter: 2010Q4

REPORT INFORMATION
  Report Type: 
  Country: None (occurrence: None)
  Receive Date: 20101015
  Receipt Date: 20101006
  Transmission Date: 20110411
  Serious: Yes (Hospitalization)
  Sender: FDA-Public Use
  Company Number: ES-BRISTOL-MYERS SQUIBB COMPANY-15296726

PATIENT
  Age: 59 Year
  Sex: Male
  Weight: 95 kg

DRUGS (4)
  1. ERBITUX [Suspect]
     Indication: METASTATIC NEOPLASM
     Dosage: DAILY DOSE:2XMONTH
     Route: 042
     Dates: start: 20090601, end: 20100326
  2. FLUOROURACIL [Suspect]
     Indication: METASTATIC NEOPLASM
     Dosage: DAILY DOSE:2XMONTH
     Route: 042
     Dates: start: 20090601, end: 20100326
  3. OXALIPLATIN [Concomitant]
     Indication: METASTATIC NEOPLASM
     Dosage: DAILY DOSE:2XMONTH
     Route: 042
     Dates: start: 20090601, end: 20100326
  4. LEUCOVORIN CALCIUM [Concomitant]
     Indication: METASTATIC NEOPLASM
     Dosage: DAILY DOSE:4XMONTH
     Route: 042
     Dates: start: 20090601, end: 20100326

REACTIONS (2)
  - CARDIAC FAILURE CONGESTIVE [None]
  - TRICUSPID VALVE DISEASE [None]
